FAERS Safety Report 18483936 (Version 2)
Quarter: 2020Q4

REPORT INFORMATION
  Report Type: Spontaneous
  Country: ES (occurrence: ES)
  Receive Date: 20201110
  Receipt Date: 20201127
  Transmission Date: 20210114
  Serious: Yes (Hospitalization, Other)
  Sender: FDA-Public Use
  Company Number: ES-SA-2020SA311347

PATIENT

DRUGS (9)
  1. ENVARSUS XR [Suspect]
     Active Substance: TACROLIMUS
     Indication: IMMUNOSUPPRESSION
     Route: 065
  2. METHYLPREDNISOLONE. [Suspect]
     Active Substance: METHYLPREDNISOLONE
     Indication: IMMUNOSUPPRESSION
     Dosage: UNK
     Route: 042
  3. THYMOGLOBULIN [Suspect]
     Active Substance: LAPINE T-LYMPHOCYTE IMMUNE GLOBULIN
     Dosage: UNK
     Route: 042
  4. PREDNISONE. [Suspect]
     Active Substance: PREDNISONE
     Indication: IMMUNOSUPPRESSION
     Route: 065
  5. MYCOPHENOLATE [Suspect]
     Active Substance: MYCOPHENOLIC ACID
     Indication: IMMUNOSUPPRESSION
     Route: 065
  6. INSULIN [Concomitant]
     Active Substance: INSULIN NOS
     Indication: DIABETES MELLITUS
     Route: 065
  7. THYMOGLOBULIN [Suspect]
     Active Substance: LAPINE T-LYMPHOCYTE IMMUNE GLOBULIN
     Indication: IMMUNOSUPPRESSION
     Dosage: UNK
     Route: 065
  8. METHYLPREDNISOLONE. [Suspect]
     Active Substance: METHYLPREDNISOLONE
     Dosage: UNK
     Route: 065
  9. EMPAGLIFLOZIN [Suspect]
     Active Substance: EMPAGLIFLOZIN
     Indication: DIABETES MELLITUS
     Dosage: UNK
     Route: 065

REACTIONS (23)
  - Emphysematous pyelonephritis [Recovering/Resolving]
  - Pyelonephritis acute [Recovering/Resolving]
  - Tachycardia [Recovering/Resolving]
  - Tenderness [Recovering/Resolving]
  - Vesicoureteric reflux [Unknown]
  - Perinephric abscess [Recovered/Resolved]
  - Coagulation test abnormal [Recovered/Resolved]
  - Chills [Recovering/Resolving]
  - Dysuria [Unknown]
  - Candida sepsis [Recovered/Resolved]
  - Urinary tract candidiasis [Unknown]
  - Oliguria [Unknown]
  - Pyrexia [Recovered/Resolved]
  - Malaise [Recovering/Resolving]
  - Hypotension [Recovered/Resolved]
  - Pain [Recovering/Resolving]
  - Urinary tract infection enterococcal [Unknown]
  - Abdominal pain [Recovering/Resolving]
  - Pyuria [Recovered/Resolved]
  - Pyelonephritis fungal [Recovering/Resolving]
  - Renal impairment [Unknown]
  - Septic shock [Recovered/Resolved]
  - Candida infection [Recovered/Resolved]
